FAERS Safety Report 20051078 (Version 1)
Quarter: 2021Q4

REPORT INFORMATION
  Report Type: Report from Study
  Country: US (occurrence: US)
  Receive Date: 20211110
  Receipt Date: 20211110
  Transmission Date: 20220303
  Serious: Yes (Death)
  Sender: FDA-Public Use
  Company Number: US-BAUSCH-BL-2021-036689

PATIENT
  Age: 68 Year
  Sex: Female

DRUGS (1)
  1. XIFAXAN [Suspect]
     Active Substance: RIFAXIMIN
     Indication: Hepatic cirrhosis
     Route: 048
     Dates: start: 201903

REACTIONS (4)
  - Cardiac arrest [Fatal]
  - Septic shock [Fatal]
  - Empyema [Fatal]
  - Bacteraemia [Fatal]

NARRATIVE: CASE EVENT DATE: 20210101
